FAERS Safety Report 4330106-7 (Version None)
Quarter: 2004Q1

REPORT INFORMATION
  Report Type: 
  Country: None (occurrence: None)
  Receive Date: 20040329
  Receipt Date: 20040315
  Transmission Date: 20041129
  Serious: Yes (Other)
  Sender: FDA-Public Use
  Company Number: CO-JNJFOC-20040303990

PATIENT
  Age: 64 Year
  Sex: Female

DRUGS (7)
  1. REMICADE [Suspect]
     Indication: RHEUMATOID ARTHRITIS
     Dosage: 200 MG, INTRAVENOUS
     Route: 042
     Dates: start: 20021216
  2. REMICADE [Suspect]
     Indication: RHEUMATOID ARTHRITIS
     Dosage: 200 MG, INTRAVENOUS
     Route: 042
     Dates: start: 20031003
  3. METHOTREXATE [Concomitant]
  4. DEFLAZACORT (DEFLAZACORT) [Concomitant]
  5. OMEPRAZOLE [Concomitant]
  6. OSTEOCAL (CALCIUM) [Concomitant]
  7. FOLIC ACID [Concomitant]

REACTIONS (4)
  - CHEST X-RAY ABNORMAL [None]
  - GRANULOMA [None]
  - LUNG DISORDER [None]
  - TUBERCULOSIS [None]
